FAERS Safety Report 19518181 (Version 1)
Quarter: 2021Q3

REPORT INFORMATION
  Report Type: Spontaneous
  Country: US (occurrence: US)
  Receive Date: 20210709
  Receipt Date: 20210709
  Transmission Date: 20211014
  Serious: No
  Sender: FDA-Public Use
  Company Number: None

PATIENT
  Age: 35 Year
  Sex: Female
  Weight: 70.4 kg

DRUGS (1)
  1. BAMLANIVIMAB/ETESEVIMAB [Suspect]
     Active Substance: BAMLANIVIMAB\ETESEVIMAB
     Indication: COVID-19
     Dosage: ?          OTHER FREQUENCY:ONCE;?
     Route: 042
     Dates: start: 20210424, end: 20210424

REACTIONS (6)
  - Infusion related reaction [None]
  - Throat tightness [None]
  - Nausea [None]
  - Back pain [None]
  - Chest pain [None]
  - Renal pain [None]

NARRATIVE: CASE EVENT DATE: 20210424
